FAERS Safety Report 8188276-9 (Version None)
Quarter: 2012Q1

REPORT INFORMATION
  Report Type: 
  Country: None (occurrence: None)
  Receive Date: 20120306
  Receipt Date: 20120229
  Transmission Date: 20120608
  Serious: Yes (Other)
  Sender: FDA-Public Use
  Company Number: US-ROCHE-1012066

PATIENT
  Sex: Male
  Weight: 83.99 kg

DRUGS (2)
  1. ACCUTANE [Suspect]
     Indication: ACNE
     Dosage: 40MG, 80MG
     Dates: start: 20030101, end: 20030801
  2. PRILOSEC [Concomitant]

REACTIONS (11)
  - COLITIS ULCERATIVE [None]
  - DRY SKIN [None]
  - BLOOD TRIGLYCERIDES INCREASED [None]
  - INFLAMMATORY BOWEL DISEASE [None]
  - ACNE [None]
  - EPISTAXIS [None]
  - IRRITABLE BOWEL SYNDROME [None]
  - LIP DRY [None]
  - SLEEP DISORDER [None]
  - CHAPPED LIPS [None]
  - STRESS [None]
